FAERS Safety Report 24880595 (Version 1)
Quarter: 2025Q1

REPORT INFORMATION
  Report Type: Spontaneous
  Country: US (occurrence: US)
  Receive Date: 20250123
  Receipt Date: 20250123
  Transmission Date: 20250408
  Serious: Yes (Other)
  Sender: JOHNSON AND JOHNSON
  Company Number: US-ViiV Healthcare-120720

PATIENT
  Age: 36 Year
  Sex: Male

DRUGS (3)
  1. RILPIVIRINE [Suspect]
     Active Substance: RILPIVIRINE
     Indication: Product used for unknown indication
     Route: 065
  2. CABOTEGRAVIR [Suspect]
     Active Substance: CABOTEGRAVIR
     Indication: Product used for unknown indication
     Route: 065
  3. PENICILLIN G BENZATHINE [Suspect]
     Active Substance: PENICILLIN G BENZATHINE
     Indication: Syphilis
     Route: 065

REACTIONS (4)
  - Surgery [Unknown]
  - Syphilis [Unknown]
  - Injection site erythema [Unknown]
  - Sensory loss [Unknown]
